FAERS Safety Report 10498104 (Version 1)
Quarter: 2014Q4

REPORT INFORMATION
  Report Type: Spontaneous
  Country: US (occurrence: None)
  Receive Date: 20141002
  Receipt Date: 20141002
  Transmission Date: 20150528
  Serious: Yes (Death)
  Sender: FDA-Public Use
  Company Number: INT_00423_2014

PATIENT
  Sex: Female

DRUGS (6)
  1. DEXAMETHASONE. [Concomitant]
     Active Substance: DEXAMETHASONE
  2. PACLITAXEL (HQ SPECIALTY) [Suspect]
     Active Substance: PACLITAXEL
     Indication: BREAST CANCER
     Dosage: OVER 1 HOUR ON DAY 1 WEEKLY FOR UP TO 12 DOSES.
     Route: 042
  3. VORINOSTAT [Suspect]
     Active Substance: VORINOSTAT
     Indication: BREAST CANCER
     Dosage: TWICE DAILY ON DAYS 1-3 OF EACH WEEK OF PLACITAXEL DOSE
     Route: 048
  4. TRASTUZUMAB [Suspect]
     Active Substance: TRASTUZUMAB
     Indication: BREAST CANCER
     Dosage: 4 M/KG LOADING DOSE OVER 90 MINS
  5. H2 BLOCKER [Concomitant]
  6. DIPHENHYDRAMINE [Concomitant]
     Active Substance: DIPHENHYDRAMINE

REACTIONS (4)
  - Toxicity to various agents [None]
  - Platelet count decreased [None]
  - Neutrophil count decreased [None]
  - Pulmonary embolism [None]
